FAERS Safety Report 8486426-8 (Version None)
Quarter: 2012Q3

REPORT INFORMATION
  Report Type: 
  Country: None (occurrence: None)
  Receive Date: 20120703
  Receipt Date: 20120625
  Transmission Date: 20120928
  Serious: Yes (Hospitalization)
  Sender: FDA-Public Use
  Company Number: CHPA2012GB013078

PATIENT
  Age: 85 Year
  Sex: Male

DRUGS (1)
  1. SCOPOLAMINE [Suspect]
     Indication: SALIVARY HYPERSECRETION
     Dosage: 1 DF, UNK
     Route: 062
     Dates: start: 20120622, end: 20120622

REACTIONS (5)
  - COORDINATION ABNORMAL [None]
  - OFF LABEL USE [None]
  - TREMOR [None]
  - URINARY TRACT INFECTION [None]
  - INCOHERENT [None]
